FAERS Safety Report 5458567-0 (Version None)
Quarter: 2007Q3

REPORT INFORMATION
  Report Type: 
  Country: None (occurrence: None)
  Receive Date: 20070919
  Receipt Date: 20070509
  Transmission Date: 20080115
  Serious: Yes (Other)
  Sender: FDA-Public Use
  Company Number: US-ASTRAZENECA-2007UW07161

PATIENT
  Age: 25 Year
  Sex: Female
  Weight: 50.9 kg

DRUGS (1)
  1. SEROQUEL [Suspect]
     Indication: BIPOLAR DISORDER
     Route: 048
     Dates: start: 20070312, end: 20070405

REACTIONS (2)
  - AGITATION [None]
  - TACHYCARDIA [None]
